FAERS Safety Report 10960122 (Version 2)
Quarter: 2015Q2

REPORT INFORMATION
  Report Type: Spontaneous
  Country: US (occurrence: US)
  Receive Date: 20150327
  Receipt Date: 20150506
  Transmission Date: 20150821
  Serious: No
  Sender: FDA-Public Use
  Company Number: US-ROXANE LABORATORIES, INC.-2015-RO-00546RO

PATIENT
  Age: 55 Year
  Sex: Female
  Weight: 58 kg

DRUGS (4)
  1. DEXAMETHASONE. [Suspect]
     Active Substance: DEXAMETHASONE
     Indication: SCIATICA
     Dosage: 16 MG
     Route: 048
     Dates: start: 20150313, end: 20150319
  2. CALCIUM [Concomitant]
     Active Substance: CALCIUM
     Indication: MENOPAUSE
     Route: 065
  3. DEXAMETHASONE. [Suspect]
     Active Substance: DEXAMETHASONE
     Dosage: 16 MG
     Route: 048
     Dates: start: 20150320, end: 20150325
  4. VITAMIN D [Concomitant]
     Active Substance: CHOLECALCIFEROL
     Route: 065

REACTIONS (5)
  - Pain in extremity [Recovered/Resolved]
  - Musculoskeletal stiffness [Recovered/Resolved]
  - Hypoaesthesia [Recovered/Resolved]
  - Abdominal discomfort [Not Recovered/Not Resolved]
  - Fatigue [Not Recovered/Not Resolved]

NARRATIVE: CASE EVENT DATE: 20150320
